FAERS Safety Report 8461846-6 (Version None)
Quarter: 2012Q2

REPORT INFORMATION
  Report Type: 
  Country: None (occurrence: None)
  Receive Date: 20120625
  Receipt Date: 20120619
  Transmission Date: 20120825
  Serious: Yes (Death, Hospitalization, Other)
  Sender: FDA-Public Use
  Company Number: US-ASTELLAS-2012US002627

PATIENT
  Age: 59 Year
  Sex: Female
  Weight: 47 kg

DRUGS (2)
  1. MK-2206 [Suspect]
     Indication: NON-SMALL CELL LUNG CANCER
     Dosage: 45 MG, QOD
     Route: 048
     Dates: start: 20110922, end: 20120223
  2. ERLOTINIB HYDROCHLORIDE [Suspect]
     Indication: NON-SMALL CELL LUNG CANCER
     Dosage: 150 MG, UID/QD
     Route: 048
     Dates: start: 20110922, end: 20120223

REACTIONS (10)
  - DEATH [None]
  - PRODUCTIVE COUGH [None]
  - DEPRESSED LEVEL OF CONSCIOUSNESS [None]
  - HAEMOGLOBIN DECREASED [None]
  - DYSPNOEA [None]
  - FATIGUE [None]
  - SEPSIS [None]
  - COUGH [None]
  - HYPOXIA [None]
  - PNEUMONIA [None]
